FAERS Safety Report 17144800 (Version 6)
Quarter: 2020Q1

REPORT INFORMATION
  Report Type: Report from Study
  Country: JP (occurrence: JP)
  Receive Date: 20191212
  Receipt Date: 20200304
  Transmission Date: 20200409
  Serious: Yes (Death, Hospitalization)
  Sender: FDA-Public Use
  Company Number: JP-EISAI MEDICAL RESEARCH-EC-2019-066892

PATIENT
  Age: 91 Year
  Sex: Female
  Weight: 44 kg

DRUGS (8)
  1. LENVIMA [Suspect]
     Active Substance: LENVATINIB
     Indication: HEPATOCELLULAR CARCINOMA
     Route: 048
     Dates: start: 20180808, end: 20180809
  2. LENVIMA [Suspect]
     Active Substance: LENVATINIB
     Route: 048
     Dates: start: 20180820, end: 20190129
  3. LENVIMA [Suspect]
     Active Substance: LENVATINIB
     Route: 048
     Dates: start: 20190219, end: 20190603
  4. PREDNISOLONE. [Concomitant]
     Active Substance: PREDNISOLONE
  5. LENVIMA [Suspect]
     Active Substance: LENVATINIB
     Route: 048
     Dates: start: 20190604, end: 20190718
  6. ALDACTONE A [Concomitant]
     Active Substance: SPIRONOLACTONE
  7. ALBUMIN [Concomitant]
     Active Substance: ALBUMIN HUMAN
  8. LENVIMA [Suspect]
     Active Substance: LENVATINIB
     Route: 048
     Dates: start: 20180810, end: 20180819

REACTIONS (3)
  - Sepsis [Fatal]
  - Pleural effusion [Recovering/Resolving]
  - Cholecystitis acute [Fatal]

NARRATIVE: CASE EVENT DATE: 20190129
